FAERS Safety Report 23302187 (Version 2)
Quarter: 2024Q1

REPORT INFORMATION
  Report Type: Spontaneous
  Country: JP (occurrence: JP)
  Receive Date: 20231215
  Receipt Date: 20240314
  Transmission Date: 20240410
  Serious: Yes (Other)
  Sender: FDA-Public Use
  Company Number: JP-IQVIA-JT2023JP000358

PATIENT
  Age: 87 Year
  Sex: Male
  Weight: 68.5 kg

DRUGS (16)
  1. FERRIC CITRATE ANHYDROUS [Suspect]
     Active Substance: FERRIC CITRATE ANHYDROUS
     Indication: Hyperphosphataemia
     Dosage: 250 MILLIGRAM, TID
     Route: 048
  2. ENARODUSTAT [Suspect]
     Active Substance: ENARODUSTAT
     Indication: Nephrogenic anaemia
     Dosage: 4 MILLIGRAM, QD
     Route: 048
     Dates: start: 20230815
  3. ENARODUSTAT [Suspect]
     Active Substance: ENARODUSTAT
     Dosage: 3 MILLIGRAM, QD
     Route: 048
     Dates: start: 20230912
  4. ENARODUSTAT [Suspect]
     Active Substance: ENARODUSTAT
     Dosage: 2 MILLIGRAM, QD
     Route: 048
     Dates: start: 20231024
  5. ENARODUSTAT [Suspect]
     Active Substance: ENARODUSTAT
     Dosage: 1 MILLIGRAM, QD
     Route: 048
     Dates: start: 20231129
  6. ENARODUSTAT [Suspect]
     Active Substance: ENARODUSTAT
     Dosage: 0.57 MILLIGRAM, QD
     Route: 048
     Dates: start: 20231213
  7. ENARODUSTAT [Suspect]
     Active Substance: ENARODUSTAT
     Dosage: 1 MILLIGRAM, QD
     Route: 048
     Dates: start: 20240124
  8. ALPROSTADIL [Concomitant]
     Active Substance: ALPROSTADIL
     Indication: Peripheral arterial occlusive disease
     Dosage: 10 MICROGRAM, 3 TIMES/WK
     Route: 042
  9. ASPIRIN [Concomitant]
     Active Substance: ASPIRIN
     Indication: Angina pectoris
     Dosage: 100 MILLIGRAM, QD
     Route: 048
  10. ALFAROL [Concomitant]
     Active Substance: ALFACALCIDOL
     Indication: Diabetic nephropathy
     Dosage: 0.25 MICROGRAM, QD
     Route: 048
  11. NEXIUM [Concomitant]
     Active Substance: ESOMEPRAZOLE MAGNESIUM
     Indication: Gastrooesophageal reflux disease
     Dosage: 20 MILLIGRAM, QD
     Route: 048
     Dates: end: 20240123
  12. SARPOGRELATE HYDROCHLORIDE [Concomitant]
     Active Substance: SARPOGRELATE HYDROCHLORIDE
     Indication: Peripheral arterial occlusive disease
     Dosage: 100 MILLIGRAM, TID
     Route: 048
  13. LAGNOS NF [Concomitant]
     Indication: Constipation
     Dosage: 24 GRAM, BID
     Route: 048
  14. ELOBIXIBAT [Concomitant]
     Active Substance: ELOBIXIBAT
     Indication: Constipation
     Dosage: 10 MILLIGRAM, QD
     Route: 048
  15. IRON SUCROSE [Concomitant]
     Active Substance: IRON SUCROSE
     Indication: Nephrogenic anaemia
     Dosage: 40 MILLIGRAM, QWK
     Route: 042
     Dates: start: 20231012, end: 20231228
  16. ESOMEPRAZOLE MAGNESIUM [Concomitant]
     Active Substance: ESOMEPRAZOLE\ESOMEPRAZOLE MAGNESIUM\ESOMEPRAZOLE MAGNESIUM DIHYDRATE
     Indication: Gastrooesophageal reflux disease
     Dosage: 20 MILLIGRAM, QD
     Route: 048
     Dates: start: 20240124

REACTIONS (2)
  - Shunt stenosis [Recovered/Resolved]
  - Subclavian vein stenosis [Recovered/Resolved]

NARRATIVE: CASE EVENT DATE: 20230928
